FAERS Safety Report 7276462-1 (Version None)
Quarter: 2011Q1

REPORT INFORMATION
  Report Type: 
  Country: None (occurrence: None)
  Receive Date: 20110204
  Receipt Date: 20110127
  Transmission Date: 20110831
  Serious: Yes (Other)
  Sender: FDA-Public Use
  Company Number: JP-AMGEN-KDC433620

PATIENT
  Age: 76 Year
  Sex: Female
  Weight: 35 kg

DRUGS (18)
  1. PANCREAZE [Concomitant]
     Route: 048
  2. OXALIPLATIN [Concomitant]
     Indication: COLORECTAL CANCER
     Dosage: 60 MG/KG, Q2WK
     Route: 041
     Dates: start: 20100629
  3. FLUOROURACIL [Concomitant]
     Indication: COLORECTAL CANCER
     Dosage: UNK UNK, Q2WK
     Route: 041
     Dates: start: 20100401
  4. SENNOSIDE [Concomitant]
     Dosage: UNK UNK, UNK
     Route: 048
  5. PURSENNID [Concomitant]
     Route: 048
  6. CORTICOSTEROIDS [Concomitant]
     Indication: PROPHYLAXIS
     Route: 065
  7. CALCIUM LEVOFOLINATE [Concomitant]
     Indication: COLORECTAL CANCER
     Dosage: UNK UNK, Q2WK
     Route: 041
     Dates: start: 20100401
  8. LEUCON [Concomitant]
     Route: 048
  9. CALCIUM LEVOFOLINATE [Concomitant]
     Route: 041
     Dates: start: 20100629
  10. PANITUMUMAB [Suspect]
     Indication: COLORECTAL CANCER
     Dosage: 6 MG/KG, Q2WK
     Route: 041
     Dates: start: 20100629, end: 20100713
  11. FLUOROURACIL [Concomitant]
     Route: 041
     Dates: start: 20100629
  12. DEPAS [Concomitant]
     Route: 048
  13. CORTICOSTEROID NOS [Concomitant]
     Indication: PROPHYLAXIS
     Dosage: UNK UNK, UNK
     Route: 065
  14. PANCREAZE [Concomitant]
     Dosage: UNK UNK, UNK
     Route: 048
  15. ANTIHISTAMINES [Concomitant]
     Indication: PROPHYLAXIS
     Dosage: UNK UNK, UNK
     Route: 065
  16. ANTIHISTAMINES [Concomitant]
     Route: 065
  17. DEPAS [Concomitant]
     Dosage: UNK UNK, UNK
     Route: 048
  18. LEUCON [Concomitant]
     Indication: NEUTROPENIA
     Dosage: UNK UNK, UNK
     Route: 048

REACTIONS (1)
  - GLOSSITIS [None]
